FAERS Safety Report 15154716 (Version 3)
Quarter: 2018Q3

REPORT INFORMATION
  Report Type: Spontaneous
  Country: US (occurrence: US)
  Receive Date: 20180717
  Receipt Date: 20180831
  Transmission Date: 20181010
  Serious: No
  Sender: FDA-Public Use
  Company Number: US-PFIZER INC-2018287419

PATIENT
  Sex: Female

DRUGS (1)
  1. CELEBREX [Suspect]
     Active Substance: CELECOXIB
     Indication: BLOOD CHOLESTEROL INCREASED
     Dosage: UNK (ABOUT 10 YEARS BEFORE IN 2006 OR 2007)

REACTIONS (2)
  - Liver disorder [Unknown]
  - Product use in unapproved indication [Unknown]
